FAERS Safety Report 6309775-8 (Version None)
Quarter: 2009Q3

REPORT INFORMATION
  Report Type: 
  Country: None (occurrence: None)
  Receive Date: 20090811
  Receipt Date: 20090706
  Transmission Date: 20100115
  Serious: No
  Sender: FDA-Public Use
  Company Number: 1000007232

PATIENT
  Age: 51 Year
  Sex: Female

DRUGS (17)
  1. SAVELLA [Suspect]
     Indication: FIBROMYALGIA
     Dosage: SEE IMAGE
     Route: 048
     Dates: start: 20090625, end: 20090625
  2. SAVELLA [Suspect]
     Indication: FIBROMYALGIA
     Dosage: SEE IMAGE
     Route: 048
     Dates: start: 20090626, end: 20090627
  3. SAVELLA [Suspect]
     Indication: FIBROMYALGIA
     Dosage: SEE IMAGE
     Route: 048
     Dates: start: 20090628, end: 20090701
  4. SAVELLA [Suspect]
     Indication: FIBROMYALGIA
     Dosage: SEE IMAGE
     Route: 048
     Dates: start: 20090701
  5. NEURONTIN [Concomitant]
  6. PREMARIN [Concomitant]
  7. LOVAZA [Concomitant]
  8. SIMVASTATIN [Concomitant]
  9. AMBIEN [Concomitant]
  10. ATIVAN [Concomitant]
  11. SOMA [Concomitant]
  12. TOPAMAX [Concomitant]
  13. LEVOTHYROXINE [Concomitant]
  14. SINGULAIR [Concomitant]
  15. OXYCONTIN [Concomitant]
  16. XANAX [Concomitant]
  17. REMERON [Concomitant]

REACTIONS (2)
  - HEADACHE [None]
  - PALPITATIONS [None]
